FAERS Safety Report 5704390-9 (Version None)
Quarter: 2008Q2

REPORT INFORMATION
  Report Type: 
  Country: None (occurrence: None)
  Receive Date: 20080414
  Receipt Date: 20080407
  Transmission Date: 20081010
  Serious: Yes (Other)
  Sender: FDA-Public Use
  Company Number: B0360545A

PATIENT
  Sex: Female

DRUGS (9)
  1. PAROXETINE HCL [Suspect]
     Indication: DEPRESSION
     Route: 065
     Dates: start: 19960620, end: 20070227
  2. TRAZODONE HCL [Concomitant]
     Dates: start: 20000607
  3. CIPRALEX [Concomitant]
     Dates: start: 20060601, end: 20060701
  4. MIRTAZAPINE [Concomitant]
     Dates: start: 20060701, end: 20061001
  5. VENLAFAXINE HCL [Concomitant]
     Dates: start: 20061001
  6. DIAZEPAM [Concomitant]
     Dates: start: 20061001
  7. TEMAZEPAM [Concomitant]
     Dates: start: 20061101, end: 20061201
  8. OLANZAPINE [Concomitant]
  9. RISPERIDONE [Concomitant]

REACTIONS (20)
  - ANXIETY [None]
  - CONFUSIONAL STATE [None]
  - CRYING [None]
  - DEPRESSION [None]
  - DISSOCIATION [None]
  - DIZZINESS [None]
  - GASTRIC ULCER [None]
  - GENERALISED ANXIETY DISORDER [None]
  - HYPERHIDROSIS [None]
  - HYPERVIGILANCE [None]
  - INSOMNIA [None]
  - MOOD SWINGS [None]
  - PERSONALITY CHANGE [None]
  - PSYCHOMOTOR HYPERACTIVITY [None]
  - RESTLESSNESS [None]
  - STOMACH DISCOMFORT [None]
  - SUICIDAL IDEATION [None]
  - TREMOR [None]
  - VOMITING [None]
  - WITHDRAWAL SYNDROME [None]
